FAERS Safety Report 11939006 (Version 1)
Quarter: 2016Q1

REPORT INFORMATION
  Report Type: Spontaneous
  Country: JP (occurrence: JP)
  Receive Date: 20160122
  Receipt Date: 20160122
  Transmission Date: 20160526
  Serious: Yes (Death, Other)
  Sender: FDA-Public Use
  Company Number: JP-RECORDATI RARE DISEASES-JP-R13005-16-00012

PATIENT
  Age: 4 Day
  Sex: Male
  Weight: 1.23 kg

DRUGS (1)
  1. INDOMETHACIN. [Suspect]
     Active Substance: INDOMETHACIN
     Indication: PRODUCT USED FOR UNKNOWN INDICATION
     Route: 065

REACTIONS (5)
  - Off label use [Fatal]
  - Hepatic haematoma [Fatal]
  - Post procedural haemorrhage [Fatal]
  - Ileal perforation [Fatal]
  - Disseminated intravascular coagulation [Fatal]
